FAERS Safety Report 12608362 (Version 3)
Quarter: 2016Q4

REPORT INFORMATION
  Report Type: Spontaneous
  Country: GB (occurrence: GB)
  Receive Date: 20160729
  Receipt Date: 20161019
  Transmission Date: 20170207
  Serious: Yes (Other)
  Sender: FDA-Public Use
  Company Number: GB-ELI_LILLY_AND_COMPANY-GB201607005874

PATIENT
  Age: 64 Year
  Sex: Male

DRUGS (2)
  1. DULOXETINE HYDROCHLORIDE. [Suspect]
     Active Substance: DULOXETINE HYDROCHLORIDE
     Indication: STRESS URINARY INCONTINENCE
     Dosage: UNK, UNKNOWN
     Route: 048
     Dates: end: 2016
  2. YENTREVE [Suspect]
     Active Substance: DULOXETINE HYDROCHLORIDE
     Indication: STRESS URINARY INCONTINENCE
     Dosage: UNK UNK, UNKNOWN
     Route: 048
     Dates: end: 2016

REACTIONS (4)
  - Off label use [Recovered/Resolved]
  - Cellulitis [Recovered/Resolved]
  - Swelling face [Recovered/Resolved]
  - Dizziness [Recovered/Resolved]

NARRATIVE: CASE EVENT DATE: 201605
